FAERS Safety Report 14337992 (Version 1)
Quarter: 2017Q4

REPORT INFORMATION
  Report Type: Spontaneous
  Country: US (occurrence: US)
  Receive Date: 20171229
  Receipt Date: 20171229
  Transmission Date: 20180321
  Serious: Yes (Other)
  Sender: FDA-Public Use
  Company Number: US-BRISTOL-MYERS SQUIBB COMPANY-BMS-2017-114964

PATIENT
  Sex: Male
  Weight: 104.3 kg

DRUGS (1)
  1. YERVOY [Suspect]
     Active Substance: IPILIMUMAB
     Indication: MALIGNANT MELANOMA
     Dosage: UNK
     Route: 042
     Dates: start: 20170518

REACTIONS (5)
  - Pituitary enlargement [Unknown]
  - Muscle twitching [Unknown]
  - Muscular weakness [Unknown]
  - Depression [Unknown]
  - Skin disorder [Unknown]
